FAERS Safety Report 4320754-2 (Version None)
Quarter: 2004Q1

REPORT INFORMATION
  Report Type: 
  Country: None (occurrence: None)
  Receive Date: 20040322
  Receipt Date: 20040317
  Transmission Date: 20041129
  Serious: Yes (Hospitalization)
  Sender: FDA-Public Use
  Company Number: BE-ROCHE-361819

PATIENT
  Age: 78 Year
  Sex: Male

DRUGS (1)
  1. RIVOTRIL [Suspect]
     Indication: NEUROPATHY
     Route: 048
     Dates: start: 20030815, end: 20040305

REACTIONS (2)
  - BREAST PAIN [None]
  - GYNAECOMASTIA [None]
